FAERS Safety Report 12351774 (Version 2)
Quarter: 2016Q2

REPORT INFORMATION
  Report Type: Spontaneous
  Country: US (occurrence: US)
  Receive Date: 20160510
  Receipt Date: 20160517
  Transmission Date: 20160815
  Serious: Yes (Hospitalization)
  Sender: FDA-Public Use
  Company Number: US-JNJFOC-20160413877

PATIENT
  Sex: Male
  Weight: 99.79 kg

DRUGS (1)
  1. LISTERINE ORIGINAL [Suspect]
     Active Substance: EUCALYPTOL\MENTHOL\METHYL SALICYLATE\THYMOL
     Indication: ORAL MUCOSAL BLISTERING
     Dosage: 1/4 OF A CUP 4 TO 8 TIMES A DAY
     Route: 048

REACTIONS (3)
  - Product use issue [Recovering/Resolving]
  - Off label use [Recovering/Resolving]
  - Adverse event [Recovering/Resolving]
